FAERS Safety Report 14948533 (Version 1)
Quarter: 2018Q2

REPORT INFORMATION
  Report Type: Spontaneous
  Country: US (occurrence: US)
  Receive Date: 20180529
  Receipt Date: 20180529
  Transmission Date: 20180711
  Serious: Yes (Hospitalization, Other)
  Sender: FDA-Public Use
  Company Number: US-BAYER-2018-096404

PATIENT
  Age: 59 Year
  Sex: Male

DRUGS (12)
  1. CLOFAZIMINE [Suspect]
     Active Substance: CLOFAZIMINE
     Indication: PULMONARY TUBERCULOSIS
     Dosage: 200/100 UNK, QD
     Dates: start: 20170301, end: 201801
  2. AMOXICILLIN TRIHYDRATE W/CLAVULANTE POTASSIUM [Suspect]
     Active Substance: AMOXICILLIN\CLAVULANATE POTASSIUM
     Indication: PULMONARY TUBERCULOSIS
     Dosage: 2000 UNK, QD
     Route: 065
     Dates: start: 20180112, end: 20180414
  3. LEVOFLOXACIN. [Suspect]
     Active Substance: LEVOFLOXACIN
     Dosage: UNK UNK, TIW
     Dates: start: 20170301, end: 201801
  4. CLOFAZIMINE [Suspect]
     Active Substance: CLOFAZIMINE
     Indication: PULMONARY TUBERCULOSIS
     Dosage: UNK
  5. CYCLOSERINE. [Suspect]
     Active Substance: CYCLOSERINE
     Indication: PULMONARY TUBERCULOSIS
     Dosage: 500 UNK, QD
     Route: 065
     Dates: start: 20170206
  6. MOXIFLOXACIN ORAL [Suspect]
     Active Substance: MOXIFLOXACIN
     Indication: PULMONARY TUBERCULOSIS
     Dosage: 400 UNK, QD
     Route: 065
     Dates: start: 20180112, end: 20180414
  7. CLOFAZIMINE [Suspect]
     Active Substance: CLOFAZIMINE
     Indication: PULMONARY TUBERCULOSIS
     Dosage: 200/100 UNK, QD
     Dates: start: 20170206, end: 20170222
  8. CYCLOSERINE. [Suspect]
     Active Substance: CYCLOSERINE
     Indication: PULMONARY TUBERCULOSIS
     Dosage: UNK UNK, TIW
     Dates: start: 20170301, end: 201801
  9. LEVOFLOXACIN. [Suspect]
     Active Substance: LEVOFLOXACIN
     Dosage: 1000 UNK, QD
     Route: 065
     Dates: start: 20170206
  10. IMIPENEM [Suspect]
     Active Substance: IMIPENEM
     Indication: PULMONARY TUBERCULOSIS
     Dosage: 2000 UNK, QD
     Route: 065
     Dates: start: 20180114, end: 20180414
  11. CLOFAZIMINE [Suspect]
     Active Substance: CLOFAZIMINE
     Indication: PULMONARY TUBERCULOSIS
     Dosage: 100 UNK, QD
     Route: 065
     Dates: start: 20180112, end: 20180414
  12. PYRIDOXINE [Concomitant]
     Active Substance: PYRIDOXINE
     Dosage: UNK

REACTIONS (7)
  - Pancoast^s tumour [Not Recovered/Not Resolved]
  - Headache [None]
  - Drug ineffective [None]
  - Musculoskeletal pain [Unknown]
  - Dizziness [None]
  - Anaemia [None]
  - Hepatomegaly [None]

NARRATIVE: CASE EVENT DATE: 20171212
